FAERS Safety Report 8156880-X (Version None)
Quarter: 2012Q1

REPORT INFORMATION
  Report Type: 
  Country: None (occurrence: None)
  Receive Date: 20120222
  Receipt Date: 20120116
  Transmission Date: 20120608
  Serious: Yes (Other)
  Sender: FDA-Public Use
  Company Number: JP-GLAXOSMITHKLINE-B0776505A

PATIENT
  Age: 76 Year
  Sex: Female

DRUGS (2)
  1. ARIXTRA [Suspect]
     Indication: THROMBOSIS PROPHYLAXIS
     Dosage: 1.5MG PER DAY
     Route: 058
     Dates: start: 20120114, end: 20120114
  2. ANTIBIOTIC [Suspect]
     Route: 065
     Dates: start: 20120114

REACTIONS (4)
  - HYPERSENSITIVITY [None]
  - BLOOD PRESSURE DECREASED [None]
  - HYPOTENSION [None]
  - RASH [None]
